FAERS Safety Report 5920517-8 (Version None)
Quarter: 2008Q4

REPORT INFORMATION
  Report Type: 
  Country: None (occurrence: None)
  Receive Date: 20081016
  Receipt Date: 20081009
  Transmission Date: 20090506
  Serious: Yes (Other)
  Sender: FDA-Public Use
  Company Number: B0541173A

PATIENT
  Age: 66 Year
  Sex: Female

DRUGS (1)
  1. ZELITREX [Suspect]
     Dosage: 1G THREE TIMES PER DAY
     Route: 048
     Dates: start: 20080901, end: 20080923

REACTIONS (2)
  - HAEMATOCHEZIA [None]
  - HAEMORRHAGE [None]
